FAERS Safety Report 8304516-7 (Version None)
Quarter: 2012Q2

REPORT INFORMATION
  Report Type: 
  Country: None (occurrence: None)
  Receive Date: 20120423
  Receipt Date: 20120417
  Transmission Date: 20120825
  Serious: Yes (Hospitalization)
  Sender: FDA-Public Use
  Company Number: US-GLAXOSMITHKLINE-A0913456A

PATIENT
  Age: 62 Year
  Sex: Male

DRUGS (6)
  1. PRAVASTATIN [Concomitant]
  2. LISINOPRIL [Concomitant]
  3. JANUVIA [Concomitant]
  4. LYRICA [Concomitant]
  5. METFORMIN HCL [Concomitant]
  6. AVANDIA [Suspect]
     Indication: DIABETES MELLITUS
     Dosage: 8MG PER DAY
     Route: 048
     Dates: start: 20050101, end: 20080901

REACTIONS (5)
  - ARRHYTHMIA [None]
  - CARDIOVASCULAR DISORDER [None]
  - MYOCARDIAL INFARCTION [None]
  - HAEMORRHAGIC STROKE [None]
  - CARDIAC DISORDER [None]
